FAERS Safety Report 10100965 (Version 1)
Quarter: 2014Q2

REPORT INFORMATION
  Report Type: Spontaneous
  Country: US (occurrence: US)
  Receive Date: 20140424
  Receipt Date: 20140424
  Transmission Date: 20141212
  Serious: No
  Sender: FDA-Public Use
  Company Number: US-009507513-1404USA011630

PATIENT
  Sex: 0

DRUGS (1)
  1. NASONEX [Suspect]
     Dosage: (EA) 50, PRN
     Route: 045
     Dates: start: 2009

REACTIONS (3)
  - Drug administration error [Unknown]
  - Product quality issue [Unknown]
  - No adverse event [Unknown]
